FAERS Safety Report 4872094-0 (Version None)
Quarter: 2005Q4

REPORT INFORMATION
  Report Type: 
  Country: None (occurrence: None)
  Receive Date: 20051230
  Receipt Date: 20051219
  Transmission Date: 20060501
  Serious: Yes (Other)
  Sender: FDA-Public Use
  Company Number: FR-2005-027583

PATIENT
  Age: 20 Year
  Sex: Female

DRUGS (1)
  1. MAGNEVIST [Suspect]
     Indication: NUCLEAR MAGNETIC RESONANCE IMAGING
     Dosage: 14 ML, 1 DOSE, INTRAVENOUS
     Route: 042
     Dates: start: 20051216, end: 20051216

REACTIONS (5)
  - CYANOSIS [None]
  - NAUSEA [None]
  - OEDEMA [None]
  - PROCEDURAL COMPLICATION [None]
  - VOMITING [None]
